FAERS Safety Report 6342199-6 (Version None)
Quarter: 2009Q3

REPORT INFORMATION
  Report Type: 
  Country: None (occurrence: None)
  Receive Date: 20090904
  Receipt Date: 20090904
  Transmission Date: 20100115
  Serious: Yes (Other)
  Sender: FDA-Public Use
  Company Number: None

PATIENT
  Age: 83 Year
  Sex: Female
  Weight: 61.2356 kg

DRUGS (4)
  1. METRONIDAZOLE [Suspect]
     Indication: BACTERIAL INFECTION
     Dosage: 1 TAB EVERY 8 HOURS PO
     Route: 048
     Dates: start: 20090722, end: 20090727
  2. METRONIDAZOLE [Suspect]
     Indication: DIARRHOEA
     Dosage: 1 TAB EVERY 8 HOURS PO
     Route: 048
     Dates: start: 20090722, end: 20090727
  3. CIPROFLOXACIN HCL [Suspect]
     Indication: BACTERIAL INFECTION
     Dosage: 1 TAB EVERY 12 HOURS PO
     Route: 048
     Dates: start: 20090722, end: 20090727
  4. CIPROFLOXACIN HCL [Suspect]
     Indication: DIARRHOEA
     Dosage: 1 TAB EVERY 12 HOURS PO
     Route: 048
     Dates: start: 20090722, end: 20090727

REACTIONS (3)
  - DYSSTASIA [None]
  - GAIT DISTURBANCE [None]
  - MYALGIA [None]
